FAERS Safety Report 17439118 (Version 1)
Quarter: 2020Q1

REPORT INFORMATION
  Report Type: Spontaneous
  Country: DE (occurrence: DE)
  Receive Date: 20200220
  Receipt Date: 20200220
  Transmission Date: 20200409
  Serious: Yes (Other)
  Sender: FDA-Public Use
  Company Number: DE-HORMOSAN PHARMA GMBH-2020-00829

PATIENT
  Sex: Female
  Weight: 65 kg

DRUGS (2)
  1. GINORING [Concomitant]
     Indication: CONTRACEPTION
     Dosage: UNK
     Route: 065
     Dates: start: 2017, end: 201911
  2. SERTRALINE [Suspect]
     Active Substance: SERTRALINE HYDROCHLORIDE
     Indication: PRODUCT USED FOR UNKNOWN INDICATION
     Dosage: 25 MILLIGRAM
     Route: 065
     Dates: start: 201901

REACTIONS (2)
  - Thrombosis [Unknown]
  - May-Thurner syndrome [Unknown]

NARRATIVE: CASE EVENT DATE: 20190828
